FAERS Safety Report 5120114-0 (Version None)
Quarter: 2006Q4

REPORT INFORMATION
  Report Type: 
  Country: None (occurrence: None)
  Receive Date: 20061002
  Receipt Date: 20061002
  Transmission Date: 20070319
  Serious: Yes (Other)
  Sender: FDA-Public Use
  Company Number: None

PATIENT
  Age: 58 Year
  Sex: Male
  Weight: 61.1 kg

DRUGS (1)
  1. ZYVOX [Suspect]
     Indication: PNEUMONIA ASPIRATION
     Dosage: 600 MG Q 12 H IV
     Route: 042
     Dates: start: 20060922, end: 20060927

REACTIONS (1)
  - WHITE BLOOD CELL COUNT DECREASED [None]
